FAERS Safety Report 23072423 (Version 1)
Quarter: 2023Q4

REPORT INFORMATION
  Report Type: Spontaneous
  Country: US (occurrence: None)
  Receive Date: 20231017
  Receipt Date: 20231017
  Transmission Date: 20240110
  Serious: No
  Sender: FDA-Public Use
  Company Number: US-ROCHE-3405439

PATIENT
  Sex: Male

DRUGS (1)
  1. LUNSUMIO [Suspect]
     Active Substance: MOSUNETUZUMAB-AXGB
     Indication: Product used for unknown indication
     Dosage: YES
     Route: 042
     Dates: start: 20230731

REACTIONS (3)
  - Pyrexia [Recovered/Resolved]
  - Drug ineffective [Unknown]
  - Chest pain [Unknown]

NARRATIVE: CASE EVENT DATE: 20230731
